FAERS Safety Report 20524706 (Version 1)
Quarter: 2022Q1

REPORT INFORMATION
  Report Type: Spontaneous
  Country: US (occurrence: US)
  Receive Date: 20220228
  Receipt Date: 20220228
  Transmission Date: 20220423
  Serious: No
  Sender: FDA-Public Use
  Company Number: US-BAYER-2022A029241

PATIENT
  Age: 29 Year
  Sex: Female

DRUGS (1)
  1. SKYLA [Suspect]
     Active Substance: LEVONORGESTREL
     Indication: Hormone level abnormal
     Dosage: 14?G/DAY
     Route: 015

REACTIONS (3)
  - Amenorrhoea [None]
  - Device use issue [None]
  - Off label use of device [None]
